FAERS Safety Report 5803564-6 (Version None)
Quarter: 2008Q3

REPORT INFORMATION
  Report Type: 
  Country: None (occurrence: None)
  Receive Date: 20080703
  Receipt Date: 20080625
  Transmission Date: 20090109
  Serious: Yes (Death, Hospitalization)
  Sender: FDA-Public Use
  Company Number: SPV1-2008-01352

PATIENT
  Age: 24 Year
  Sex: Male
  Weight: 40 kg

DRUGS (1)
  1. ELAPRASE [Suspect]
     Indication: MUCOPOLYSACCHARIDOSIS II
     Dosage: 18 MG, 1X/WEEK, IV DRIP
     Route: 041
     Dates: start: 20070412, end: 20080521

REACTIONS (2)
  - GENERALISED OEDEMA [None]
  - RENAL FAILURE ACUTE [None]
